FAERS Safety Report 22228100 (Version 1)
Quarter: 2023Q2

REPORT INFORMATION
  Report Type: Spontaneous
  Country: US (occurrence: None)
  Receive Date: 20230418
  Receipt Date: 20230418
  Transmission Date: 20230721
  Serious: Yes (Hospitalization, Disabling, Other)
  Sender: FDA-Public Use
  Company Number: None

PATIENT
  Age: 23 Year
  Sex: Female
  Weight: 68.85 kg

DRUGS (7)
  1. CIPROFLOXACIN [Suspect]
     Active Substance: CIPROFLOXACIN
     Indication: Urinary tract infection
     Dates: end: 20220806
  2. LDN  Levothyroxine [Concomitant]
  3. Ala Magnesium [Concomitant]
  4. B1 [Concomitant]
  5. Tumeric [Concomitant]
  6. Probiotic [Concomitant]
  7. Marshmallow root milk thistle [Concomitant]

REACTIONS (11)
  - Anxiety [None]
  - Neuropathy peripheral [None]
  - Nervousness [None]
  - Food intolerance [None]
  - Insomnia [None]
  - Depression [None]
  - Gastrooesophageal reflux disease [None]
  - Weight decreased [None]
  - Autoimmune thyroiditis [None]
  - Brain fog [None]
  - Dysbiosis [None]

NARRATIVE: CASE EVENT DATE: 20220706
